FAERS Safety Report 4781083-6 (Version None)
Quarter: 2005Q3

REPORT INFORMATION
  Report Type: 
  Country: None (occurrence: None)
  Receive Date: 20050928
  Receipt Date: 20050916
  Transmission Date: 20060218
  Serious: Yes (Other)
  Sender: FDA-Public Use
  Company Number: US-JNJFOC-20040907145

PATIENT
  Sex: Female
  Weight: 64.86 kg

DRUGS (14)
  1. REMICADE [Suspect]
     Indication: CROHN'S DISEASE
     Route: 042
  2. REMICADE [Suspect]
     Indication: RHEUMATOID ARTHRITIS
     Route: 042
  3. OXYCONTIN [Concomitant]
  4. PHENERGEN [Concomitant]
  5. BACLOFEN [Concomitant]
  6. BELLADONA [Concomitant]
  7. LEXAPRO [Concomitant]
  8. PREDNISONE [Concomitant]
  9. MORPHINE [Concomitant]
  10. DEMEROL [Concomitant]
  11. IMATREX [Concomitant]
  12. COPPER T [Concomitant]
     Indication: CONTRACEPTION
  13. PUVA [Concomitant]
  14. PROCRIT [Concomitant]

REACTIONS (18)
  - ABDOMINAL PAIN UPPER [None]
  - BLINDNESS [None]
  - BONE NEOPLASM MALIGNANT [None]
  - CARDIAC FAILURE CONGESTIVE [None]
  - CONJUNCTIVITIS [None]
  - DEMYELINATION [None]
  - HAEMOPHILIA [None]
  - HISTOPLASMOSIS [None]
  - HYPOAESTHESIA [None]
  - LUNG DISORDER [None]
  - LYMPHOMA [None]
  - MYCOSIS FUNGOIDES [None]
  - NASAL ULCER [None]
  - NASOPHARYNGITIS [None]
  - RASH [None]
  - SKIN LESION [None]
  - SYSTEMIC LUPUS ERYTHEMATOSUS [None]
  - TOE AMPUTATION [None]
